FAERS Safety Report 21633315 (Version 1)
Quarter: 2022Q4

REPORT INFORMATION
  Report Type: Spontaneous
  Country: US (occurrence: None)
  Receive Date: 20221122
  Receipt Date: 20221122
  Transmission Date: 20230113
  Serious: Yes (Hospitalization)
  Sender: FDA-Public Use
  Company Number: None

PATIENT
  Age: 13 Month
  Sex: Female

DRUGS (1)
  1. SILDENAFIL [Suspect]
     Active Substance: SILDENAFIL
     Indication: Chronic respiratory disease
     Dosage: 0.5MG 3 TIMES DAILY ORALLY?
     Route: 048
     Dates: start: 202211

REACTIONS (3)
  - Cough [None]
  - Nasal congestion [None]
  - Oxygen saturation decreased [None]

NARRATIVE: CASE EVENT DATE: 20221117
